FAERS Safety Report 25803053 (Version 1)
Quarter: 2025Q3

REPORT INFORMATION
  Report Type: Spontaneous
  Country: US (occurrence: US)
  Receive Date: 20250915
  Receipt Date: 20250915
  Transmission Date: 20251020
  Serious: Yes (Hospitalization, Disabling)
  Sender: ARDELYX
  Company Number: US-ARDELYX-2025ARDX006838

PATIENT
  Sex: Male

DRUGS (1)
  1. XPHOZAH [Suspect]
     Active Substance: TENAPANOR HYDROCHLORIDE
     Indication: Hyperphosphataemia
     Route: 048

REACTIONS (6)
  - Leg amputation [Unknown]
  - Electrocardiogram abnormal [Unknown]
  - Cardiac pacemaker insertion [Unknown]
  - Peripheral ischaemia [Unknown]
  - Muscular weakness [Unknown]
  - Fall [Unknown]

NARRATIVE: CASE EVENT DATE: 20250101
